FAERS Safety Report 14012307 (Version 1)
Quarter: 2017Q3

REPORT INFORMATION
  Report Type: Spontaneous
  Country: CN (occurrence: CN)
  Receive Date: 20170926
  Receipt Date: 20170926
  Transmission Date: 20171128
  Serious: Yes (Other)
  Sender: FDA-Public Use
  Company Number: CN-JNJFOC-20170917821

PATIENT

DRUGS (5)
  1. RISPERDAL CONSTA [Suspect]
     Active Substance: RISPERIDONE
     Indication: SCHIZOPHRENIA
     Dosage: THE DOSAGE OF INJECTION WAS GRADUALLY INCREASED FROM DAY 29 TO DAY 90
     Route: 030
  2. INVEGA SUSTENNA [Suspect]
     Active Substance: PALIPERIDONE PALMITATE
     Indication: SCHIZOPHRENIA
     Dosage: 50 MG ONCE DAILY, FOR DAY 37 TO DAY 90
     Route: 030
  3. RISPERDAL CONSTA [Suspect]
     Active Substance: RISPERIDONE
     Indication: SCHIZOPHRENIA
     Dosage: 1 TO 6 MG ONCE DAILY; DAY-1 TO DAY-28
     Route: 030
  4. INVEGA SUSTENNA [Suspect]
     Active Substance: PALIPERIDONE PALMITATE
     Indication: SCHIZOPHRENIA
     Dosage: 150 MG ONCE DAILY FOR DAY 1 TO DAY 7
     Route: 030
  5. INVEGA SUSTENNA [Suspect]
     Active Substance: PALIPERIDONE PALMITATE
     Indication: SCHIZOPHRENIA
     Dosage: 100 MG ONCE DAILY, FOR DAY 8 TO DAY 36
     Route: 030

REACTIONS (6)
  - Arrhythmia [Unknown]
  - Off label use [Unknown]
  - Tachycardia [Unknown]
  - Akathisia [Unknown]
  - Incorrect dose administered [Unknown]
  - Insomnia [Unknown]
